FAERS Safety Report 4690349-X (Version None)
Quarter: 2005Q2

REPORT INFORMATION
  Report Type: 
  Country: None (occurrence: None)
  Receive Date: 20050615
  Receipt Date: 20050607
  Transmission Date: 20051028
  Serious: Yes (Hospitalization)
  Sender: FDA-Public Use
  Company Number: FR-ROCHE-407034

PATIENT
  Age: 87 Year
  Sex: Male

DRUGS (4)
  1. ROCEPHIN [Suspect]
     Indication: DRUG USE FOR UNKNOWN INDICATION
     Dosage: FORMULATION WAS REPORTED AS '2G/40ML', INJECTABLE SOLUTION.
     Route: 042
     Dates: start: 20050127, end: 20050217
  2. ZITHROMAX [Interacting]
     Indication: DRUG USE FOR UNKNOWN INDICATION
     Route: 048
     Dates: start: 20050201, end: 20050217
  3. PREVISCAN [Interacting]
     Route: 048
     Dates: start: 20040801, end: 20050201
  4. PLAVIX [Concomitant]
     Route: 048
     Dates: start: 20040801, end: 20050202

REACTIONS (2)
  - DRUG INTERACTION [None]
  - PROTHROMBIN TIME RATIO DECREASED [None]
